FAERS Safety Report 9055347 (Version 1)
Quarter: 2013Q1

REPORT INFORMATION
  Report Type: Report from Study
  Country: US (occurrence: US)
  Receive Date: 20130206
  Receipt Date: 20130206
  Transmission Date: 20140127
  Serious: Yes (Hospitalization, Other)
  Sender: FDA-Public Use
  Company Number: US-ROCHE-1162856

PATIENT
  Age: 40 Year
  Sex: Female
  Weight: 84.7 kg

DRUGS (3)
  1. BEVACIZUMAB [Suspect]
     Indication: NON-SMALL CELL LUNG CANCER
     Dosage: LAST ADMINISTERED DATE: 10/OCT/2012
     Route: 042
     Dates: start: 20120404
  2. CISPLATIN [Suspect]
     Indication: NON-SMALL CELL LUNG CANCER
     Dosage: LAST ADMINISTERED DATE: 06/JUN/2012
     Route: 042
     Dates: start: 20120404
  3. PEMETREXED [Suspect]
     Indication: NON-SMALL CELL LUNG CANCER
     Dosage: LAST ADMINISTERED DATE: 06/JUN/2012
     Route: 042
     Dates: start: 20120404

REACTIONS (2)
  - Pain in extremity [Recovered/Resolved]
  - Medical device complication [Recovering/Resolving]
